FAERS Safety Report 24130146 (Version 1)
Quarter: 2024Q3

REPORT INFORMATION
  Report Type: Spontaneous
  Country: US (occurrence: US)
  Receive Date: 20240724
  Receipt Date: 20240724
  Transmission Date: 20241016
  Serious: No
  Sender: ROCHE
  Company Number: US-ROCHE-10000033416

PATIENT

DRUGS (1)
  1. ROZLYTREK [Suspect]
     Active Substance: ENTRECTINIB
     Indication: Glioblastoma
     Dosage: 300 A DAY
     Route: 065

REACTIONS (3)
  - Myoglobin blood decreased [Unknown]
  - Muscular weakness [Unknown]
  - Off label use [Unknown]
